FAERS Safety Report 24839141 (Version 1)
Quarter: 2025Q1

REPORT INFORMATION
  Report Type: Spontaneous
  Country: US (occurrence: US)
  Receive Date: 20250114
  Receipt Date: 20250114
  Transmission Date: 20250408
  Serious: No
  Sender: IBSA INSTITUT BIOCHIMIQUE
  Company Number: US-IBSA PHARMA INC.-2024IBS000198

PATIENT

DRUGS (2)
  1. TIROSINT-SOL [Suspect]
     Active Substance: LEVOTHYROXINE SODIUM
     Indication: Hypothyroidism
     Route: 048
     Dates: start: 2022
  2. TIROSINT-SOL [Suspect]
     Active Substance: LEVOTHYROXINE SODIUM
     Route: 065
     Dates: start: 202404

REACTIONS (6)
  - Burning sensation [None]
  - Feeling abnormal [None]
  - Gastrointestinal disorder [None]
  - Hyperhidrosis [None]
  - Insomnia [None]
  - Incorrect dose administered [Unknown]

NARRATIVE: CASE EVENT DATE: 20240101
